FAERS Safety Report 21612656 (Version 4)
Quarter: 2023Q2

REPORT INFORMATION
  Report Type: Spontaneous
  Country: JP (occurrence: JP)
  Receive Date: 20221118
  Receipt Date: 20230509
  Transmission Date: 20230722
  Serious: Yes (Other)
  Sender: FDA-Public Use
  Company Number: JP-TAKEDA-2022TJP077261

PATIENT
  Age: 9 Decade
  Sex: Male
  Weight: 58 kg

DRUGS (3)
  1. VECTIBIX [Suspect]
     Active Substance: PANITUMUMAB
     Indication: Colon cancer
     Dosage: 372 MILLIGRAM, Q3WK
     Route: 042
  2. VECTIBIX [Suspect]
     Active Substance: PANITUMUMAB
     Dosage: 372 MILLIGRAM, Q2WK
     Route: 042
     Dates: start: 202301
  3. CAPECITABINE [Concomitant]
     Active Substance: CAPECITABINE
     Dosage: 0.5 MILLIGRAM
     Route: 048

REACTIONS (4)
  - Myelosuppression [Unknown]
  - Product use issue [Unknown]
  - Abdominal distension [Unknown]
  - Rash [Recovering/Resolving]

NARRATIVE: CASE EVENT DATE: 20221201
